FAERS Safety Report 4930635-9 (Version None)
Quarter: 2006Q1

REPORT INFORMATION
  Report Type: 
  Country: None (occurrence: None)
  Receive Date: 20060302
  Receipt Date: 20060214
  Transmission Date: 20060701
  Serious: Yes (Death, Life-Threatening)
  Sender: FDA-Public Use
  Company Number: 2006AP00713

PATIENT
  Age: 24844 Day
  Sex: Male
  Weight: 60.2 kg

DRUGS (7)
  1. SEROQUEL [Suspect]
     Indication: PSYCHOTIC DISORDER DUE TO A GENERAL MEDICAL CONDITION
     Route: 048
     Dates: start: 20050618, end: 20050813
  2. SEROQUEL [Suspect]
     Route: 048
     Dates: start: 20050618, end: 20050813
  3. TANATRIL [Concomitant]
     Indication: PSYCHOTIC DISORDER DUE TO A GENERAL MEDICAL CONDITION
     Route: 048
     Dates: start: 20011225, end: 20050813
  4. LEVOTOMIN [Concomitant]
     Indication: PSYCHOTIC DISORDER DUE TO A GENERAL MEDICAL CONDITION
     Route: 048
     Dates: start: 20030120, end: 20050813
  5. TEGRETOL [Concomitant]
     Indication: PSYCHOTIC DISORDER DUE TO A GENERAL MEDICAL CONDITION
     Route: 048
     Dates: start: 20030315, end: 20050813
  6. CLONAZEPAM [Concomitant]
     Indication: PSYCHOTIC DISORDER DUE TO A GENERAL MEDICAL CONDITION
     Route: 048
     Dates: start: 20040422, end: 20050813
  7. DEPAKENE [Concomitant]
     Indication: PSYCHOTIC DISORDER DUE TO A GENERAL MEDICAL CONDITION
     Route: 048
     Dates: end: 20050813

REACTIONS (5)
  - DIABETIC HYPERGLYCAEMIC COMA [None]
  - DIALYSIS [None]
  - HYPERGLYCAEMIA [None]
  - ILEUS [None]
  - SEPTIC SHOCK [None]
